FAERS Safety Report 10014812 (Version 1)
Quarter: 2014Q1

REPORT INFORMATION
  Report Type: Spontaneous
  Country: CH (occurrence: CH)
  Receive Date: 20140317
  Receipt Date: 20140317
  Transmission Date: 20141002
  Serious: Yes (Hospitalization)
  Sender: FDA-Public Use
  Company Number: CH-JNJFOC-20140303152

PATIENT
  Age: 79 Year
  Sex: Male

DRUGS (14)
  1. RISPERDAL [Suspect]
     Indication: BIPOLAR I DISORDER
     Route: 048
     Dates: start: 20130604
  2. RISPERDAL [Suspect]
     Indication: BIPOLAR I DISORDER
     Route: 048
     Dates: start: 20130528, end: 20130603
  3. RISPERDAL [Suspect]
     Indication: SCHIZOPHRENIA, PARANOID TYPE
     Route: 048
     Dates: start: 20130604
  4. RISPERDAL [Suspect]
     Indication: SCHIZOPHRENIA, PARANOID TYPE
     Route: 048
     Dates: start: 20130528, end: 20130603
  5. CLOPIXOL [Suspect]
     Indication: BIPOLAR I DISORDER
     Route: 065
     Dates: start: 20130528, end: 20130603
  6. CLOPIXOL [Suspect]
     Indication: BIPOLAR I DISORDER
     Route: 065
     Dates: start: 20130523, end: 20130528
  7. CLOPIXOL [Suspect]
     Indication: BIPOLAR I DISORDER
     Route: 065
     Dates: start: 20130430, end: 20130522
  8. CLOPIXOL [Suspect]
     Indication: SCHIZOPHRENIA, PARANOID TYPE
     Route: 065
     Dates: start: 20130528, end: 20130603
  9. CLOPIXOL [Suspect]
     Indication: SCHIZOPHRENIA, PARANOID TYPE
     Route: 065
     Dates: start: 20130430, end: 20130522
  10. CLOPIXOL [Suspect]
     Indication: SCHIZOPHRENIA, PARANOID TYPE
     Route: 065
     Dates: start: 20130523, end: 20130528
  11. TOREM [Suspect]
     Indication: OEDEMA PERIPHERAL
     Route: 065
     Dates: start: 20130528, end: 20130708
  12. NOVALGIN [Suspect]
     Indication: PRODUCT USED FOR UNKNOWN INDICATION
     Route: 065
     Dates: start: 20130525, end: 20130603
  13. QUILONORM [Suspect]
     Indication: BIPOLAR I DISORDER
     Route: 065
  14. QUILONORM [Suspect]
     Indication: SCHIZOPHRENIA, PARANOID TYPE
     Route: 065

REACTIONS (3)
  - Parkinsonism [Recovering/Resolving]
  - Fall [Recovered/Resolved]
  - Femur fracture [Recovered/Resolved]
